FAERS Safety Report 7076433-4 (Version None)
Quarter: 2010Q4

REPORT INFORMATION
  Report Type: 
  Country: None (occurrence: None)
  Receive Date: 20101021
  Receipt Date: 20101015
  Transmission Date: 20110411
  Serious: Yes (Other)
  Sender: FDA-Public Use
  Company Number: 2010SP053499

PATIENT
  Age: 19 Year
  Sex: Female

DRUGS (5)
  1. CERAZETTE (DESOGESTREL /00754001/) [Suspect]
     Indication: PRODUCT USED FOR UNKNOWN INDICATION
     Dosage: 0.075 MG;QD
     Dates: start: 20090501
  2. RIFATER [Suspect]
     Indication: PULMONARY TUBERCULOSIS
     Dates: start: 20090606, end: 20091001
  3. MYAMBUTOL [Suspect]
     Indication: PULMONARY TUBERCULOSIS
     Dosage: 600 MG;QD
     Dates: start: 20090606, end: 20091001
  4. BENADON (PYRIDOXINE HYDROCHLORIDE) [Suspect]
     Indication: PRODUCT USED FOR UNKNOWN INDICATION
     Dosage: 150 MG;QD
     Dates: start: 20090606
  5. RIFINAH (RIFINAH) [Suspect]
     Indication: PULMONARY TUBERCULOSIS
     Dosage: 250 MG;TID
     Dates: start: 20091001, end: 20091201

REACTIONS (5)
  - CAESAREAN SECTION [None]
  - DRUG EXPOSURE DURING PREGNANCY [None]
  - DRUG INEFFECTIVE [None]
  - DRUG INTERACTION [None]
  - PREGNANCY ON ORAL CONTRACEPTIVE [None]
